FAERS Safety Report 9244446 (Version 2)
Quarter: 2013Q4

REPORT INFORMATION
  Report Type: Spontaneous
  Country: US (occurrence: US)
  Receive Date: 20130422
  Receipt Date: 20131206
  Transmission Date: 20140711
  Serious: Yes (Hospitalization)
  Sender: FDA-Public Use
  Company Number: US-BAYER-2013-050200

PATIENT
  Age: 32 Year
  Sex: Female
  Weight: 70.3 kg

DRUGS (15)
  1. YAZ [Suspect]
     Dosage: UNK
     Dates: start: 20111009
  2. GIANVI [Suspect]
     Dosage: UNK
     Dates: start: 20111009
  3. OCELLA [Suspect]
     Dosage: UNK
     Dates: start: 201110
  4. SINGULAIR [Concomitant]
     Indication: ASTHMA
     Dosage: 10 MG, DAILY
     Dates: start: 2007
  5. IBUPROFEN [Concomitant]
     Dosage: 600 MG, BID
     Dates: start: 20110728
  6. VITAMIN D [Concomitant]
     Dosage: 50000 IU, WEEKLY FOR 3 MONTHS
     Dates: start: 20110809
  7. FLUCONAZOLE [Concomitant]
     Dosage: 150 MG, NOW AND REPEAT IN 3 DAYS
     Dates: start: 20110809
  8. NOTUSS [Concomitant]
     Dosage: 1 TEASPOONFUL EVERY 6 HOURS
     Route: 048
     Dates: start: 20110907
  9. PROVENTIL [Concomitant]
     Dosage: 1 TO 2 PUFFS
     Dates: start: 20110907
  10. NAPROXEN SODIUM [Concomitant]
     Dosage: 550 MG, UNK
     Dates: start: 20110926
  11. HYDROCODONE/ACETAMINOPHEN [Concomitant]
     Dosage: 7.5-750 EVERY 6 HOURS AS NEEDED
     Dates: start: 20111006
  12. FLUZONE [Concomitant]
     Dosage: 0.5 ML, PRN
     Dates: start: 20111014
  13. PROAIR HFA [Concomitant]
     Dosage: 8.5 G, 2 PUFFS 3 TIMES DAILY EVERY 6 HOURS AS NEEDED
     Route: 048
     Dates: start: 20111027
  14. Z-PAK [Concomitant]
     Dosage: 250 MG, 6-PAK
  15. MUCINEX [Concomitant]

REACTIONS (7)
  - Transient ischaemic attack [None]
  - Pain [None]
  - Injury [None]
  - Fear of disease [None]
  - Pain [None]
  - Hypoaesthesia [None]
  - Cerebrovascular accident [None]
